FAERS Safety Report 16242731 (Version 1)
Quarter: 2019Q2

REPORT INFORMATION
  Report Type: Spontaneous
  Country: US (occurrence: US)
  Receive Date: 20190425
  Receipt Date: 20190425
  Transmission Date: 20190711
  Serious: Yes (Life-Threatening, Disabling)
  Sender: FDA-Public Use
  Company Number: None

PATIENT
  Age: 42 Year
  Sex: Male
  Weight: 128.25 kg

DRUGS (3)
  1. COSENTYX [Suspect]
     Active Substance: SECUKINUMAB
     Indication: PSORIASIS
     Dosage: ?          QUANTITY:2 INJECTION(S);OTHER FREQUENCY:5X PER WEEK, 4 WKS;?
     Route: 058
     Dates: start: 20190218, end: 20190313
  2. GLIPIZIDE. [Concomitant]
     Active Substance: GLIPIZIDE
  3. PREDNISONE. [Concomitant]
     Active Substance: PREDNISONE

REACTIONS (7)
  - Gastrointestinal pain [None]
  - Impaired quality of life [None]
  - Immunosuppression [None]
  - Crohn^s disease [None]
  - Impaired work ability [None]
  - Abdominal pain upper [None]
  - Eating disorder [None]

NARRATIVE: CASE EVENT DATE: 20190312
